FAERS Safety Report 19471245 (Version 1)
Quarter: 2021Q2

REPORT INFORMATION
  Report Type: Report from Study
  Country: PK (occurrence: PK)
  Receive Date: 20210629
  Receipt Date: 20210629
  Transmission Date: 20210717
  Serious: Yes (Death)
  Sender: FDA-Public Use
  Company Number: NVSC2021PK145271

PATIENT
  Age: 58 Year
  Sex: Female
  Weight: 72 kg

DRUGS (1)
  1. AFINITOR [Suspect]
     Active Substance: EVEROLIMUS
     Indication: BREAST CANCER
     Dosage: 10 MG, QD
     Route: 048
     Dates: start: 20201010

REACTIONS (1)
  - Metastasis [Fatal]

NARRATIVE: CASE EVENT DATE: 20210202
